FAERS Safety Report 4714914-6 (Version None)
Quarter: 2005Q3

REPORT INFORMATION
  Report Type: 
  Country: None (occurrence: None)
  Receive Date: 20050715
  Receipt Date: 20050623
  Transmission Date: 20060218
  Serious: Yes (Life-Threatening)
  Sender: FDA-Public Use
  Company Number: 2005AC01020

PATIENT
  Age: 32 Year
  Sex: Male

DRUGS (13)
  1. BUPIVACAINE [Suspect]
     Indication: ANAESTHESIA
     Route: 008
  2. LIDOCAINE [Suspect]
     Dosage: TEST DOSE
     Route: 008
  3. PROPOFOL [Suspect]
  4. FENTANYL [Suspect]
     Dosage: 30 MINS PRIOR TO SURGERY
     Route: 030
  5. FENTANYL [Suspect]
     Indication: GENERAL ANAESTHESIA
     Route: 042
  6. MIDAZOLAM HCL [Suspect]
     Indication: GENERAL ANAESTHESIA
  7. FENTANYL [Suspect]
     Indication: ANAESTHESIA
     Route: 008
  8. ALPRAZOLAM [Concomitant]
     Indication: PREMEDICATION
     Dosage: AT BEDTIME
     Route: 048
  9. EPINEPHRINE [Concomitant]
     Dosage: 1:200000
  10. SALINE [Concomitant]
  11. VECURONIUM [Concomitant]
     Indication: INTUBATION
  12. ISOFLURANE IN OXYGEN [Concomitant]
  13. APROTININ [Concomitant]
     Dosage: 10,000 UNITS/ML

REACTIONS (4)
  - CATHETER RELATED COMPLICATION [None]
  - CIRCULATORY COLLAPSE [None]
  - EMBOLISM VENOUS [None]
  - PROCEDURAL COMPLICATION [None]
